FAERS Safety Report 24829875 (Version 2)
Quarter: 2025Q2

REPORT INFORMATION
  Report Type: Spontaneous
  Country: DE (occurrence: DE)
  Receive Date: 20250110
  Receipt Date: 20250610
  Transmission Date: 20250717
  Serious: Yes (Hospitalization, Other)
  Sender: CELLTRION
  Company Number: DE-CELLTRION INC.-2024DE026476

PATIENT

DRUGS (5)
  1. INFLIXIMAB [Suspect]
     Active Substance: INFLIXIMAB
     Indication: Axial spondyloarthritis
     Dosage: 120MG EVERY 2 WEEKS
     Route: 058
     Dates: start: 20230912
  2. IBUPROFEN [Concomitant]
     Active Substance: IBUPROFEN
     Dosage: 600 MG 1 DAY PER WEEK
     Dates: start: 20230112
  3. INFLIXIMAB [Concomitant]
     Active Substance: INFLIXIMAB
     Dates: start: 20230608, end: 20230724
  4. METHOTREXATE SODIUM [Concomitant]
     Active Substance: METHOTREXATE SODIUM
     Dosage: 10 MG/WEEK
     Route: 048
     Dates: start: 20220808
  5. XELJANZ [Concomitant]
     Active Substance: TOFACITINIB CITRATE
     Dates: start: 20220808, end: 20230607

REACTIONS (1)
  - Rheumatoid arthritis [Recovered/Resolved]

NARRATIVE: CASE EVENT DATE: 20240115
